FAERS Safety Report 20033495 (Version 4)
Quarter: 2021Q4

REPORT INFORMATION
  Report Type: Report from Study
  Country: DE (occurrence: DE)
  Receive Date: 20211104
  Receipt Date: 20211117
  Transmission Date: 20220303
  Serious: Yes (Death, Life-Threatening, Hospitalization, Other)
  Sender: FDA-Public Use
  Company Number: DE-BRISTOL-MYERS SQUIBB COMPANY-BMS-2021-023971

PATIENT
  Age: 59 Year
  Sex: Male
  Weight: 85 kg

DRUGS (7)
  1. ELOTUZUMAB [Suspect]
     Active Substance: ELOTUZUMAB
     Indication: Plasma cell myeloma
     Dosage: 870 MILLIGRAM (10MG/KG)
     Route: 042
     Dates: start: 20210226, end: 20210929
  2. CARFILZOMIB [Suspect]
     Active Substance: CARFILZOMIB
     Indication: Plasma cell myeloma
     Dosage: 75 MILLIGRAM (36MG/M2, CYCLICAL)
     Route: 042
     Dates: start: 20210226, end: 20210930
  3. LENALIDOMIDE [Suspect]
     Active Substance: LENALIDOMIDE
     Indication: Plasma cell myeloma
     Dosage: 15 MILLIGRAM/DAY (25 MG, CYCLICAL)
     Route: 048
     Dates: start: 20210226, end: 20211005
  4. DEXAMETHASONE [Suspect]
     Active Substance: DEXAMETHASONE
     Indication: Plasma cell myeloma
     Dosage: 40 MILLIGRAM, CYCLICAL
     Route: 048
     Dates: start: 20210226, end: 20211005
  5. DEXAMETHASONE [Suspect]
     Active Substance: DEXAMETHASONE
     Indication: Plasma cell myeloma
     Dosage: UNK MILLIGRAM
     Route: 042
     Dates: start: 20210226, end: 20211005
  6. MELPHALAN [Suspect]
     Active Substance: MELPHALAN
     Indication: Autologous haematopoietic stem cell transplant
     Dosage: HIGH DOSE THERAPY
     Route: 065
     Dates: start: 20211015, end: 20211016
  7. GANCICLOVIR [Concomitant]
     Active Substance: GANCICLOVIR
     Indication: Cytomegalovirus test
     Dosage: 196 MILLIGRAM
     Route: 042
     Dates: start: 20101022

REACTIONS (3)
  - Candida sepsis [Fatal]
  - Extradural abscess [Not Recovered/Not Resolved]
  - Sepsis [Not Recovered/Not Resolved]

NARRATIVE: CASE EVENT DATE: 20210301
